FAERS Safety Report 20585809 (Version 1)
Quarter: 2022Q1

REPORT INFORMATION
  Report Type: Other
  Country: IE (occurrence: None)
  Receive Date: 20220312
  Receipt Date: 20220312
  Transmission Date: 20220423
  Serious: Yes (Hospitalization, Other)
  Sender: FDA-Public Use
  Company Number: IE-Neopharma Inc-000539

PATIENT
  Age: 68 Year
  Sex: Female

DRUGS (1)
  1. AMOXICILLIN\CLAVULANIC ACID [Suspect]
     Active Substance: AMOXICILLIN\CLAVULANIC ACID
     Indication: Urinary tract infection
     Dosage: 5 DAY COURSE.

REACTIONS (3)
  - Cholestatic liver injury [Recovering/Resolving]
  - Hepatotoxicity [Recovering/Resolving]
  - Condition aggravated [Recovering/Resolving]
